FAERS Safety Report 22121899 (Version 1)
Quarter: 2023Q1

REPORT INFORMATION
  Report Type: Spontaneous
  Country: US (occurrence: US)
  Receive Date: 20230321
  Receipt Date: 20230321
  Transmission Date: 20230418
  Serious: No
  Sender: FDA-Public Use
  Company Number: US-SA-SAC20230320001397

PATIENT
  Age: 54 Year
  Sex: Female

DRUGS (1)
  1. ALLEGRA [Suspect]
     Active Substance: FEXOFENADINE HYDROCHLORIDE
     Indication: Multiple allergies
     Route: 048
     Dates: start: 20230124, end: 20230313

REACTIONS (5)
  - Dehydration [Recovering/Resolving]
  - Vertigo [Recovering/Resolving]
  - Glossitis [Recovering/Resolving]
  - Lip disorder [Recovering/Resolving]
  - Dizziness [Recovering/Resolving]
